FAERS Safety Report 7365902-5 (Version None)
Quarter: 2011Q1

REPORT INFORMATION
  Report Type: 
  Country: None (occurrence: None)
  Receive Date: 20110322
  Receipt Date: 20110308
  Transmission Date: 20110831
  Serious: Yes (Hospitalization)
  Sender: FDA-Public Use
  Company Number: US-JNJFOC-20060800066

PATIENT
  Sex: Male
  Weight: 19.5 kg

DRUGS (9)
  1. INFLIXIMAB [Suspect]
     Route: 042
  2. INFLIXIMAB [Suspect]
     Dosage: RECEIVED 8 INFUSIONS
     Route: 042
  3. INFLIXIMAB [Suspect]
     Route: 042
  4. INFLIXIMAB [Suspect]
     Route: 042
  5. INFLIXIMAB [Suspect]
     Indication: COLITIS ULCERATIVE
     Dosage: RECEIVED 8 INFUSIONS
     Route: 042
  6. INFLIXIMAB [Suspect]
     Route: 042
  7. INFLIXIMAB [Suspect]
     Route: 042
  8. URSODIOL [Concomitant]
  9. INFLIXIMAB [Suspect]
     Indication: COLITIS
     Route: 042

REACTIONS (1)
  - COLITIS ULCERATIVE [None]
